FAERS Safety Report 7971471-9 (Version None)
Quarter: 2011Q4

REPORT INFORMATION
  Report Type: 
  Country: None (occurrence: None)
  Receive Date: 20111212
  Receipt Date: 20111206
  Transmission Date: 20120403
  Serious: Yes (Hospitalization, Other)
  Sender: FDA-Public Use
  Company Number: US-PFIZER INC-2010034368

PATIENT
  Sex: Male

DRUGS (2)
  1. DEPAKOTE [Concomitant]
  2. DILANTIN [Suspect]
     Indication: CONVULSION
     Dosage: UNK
     Dates: start: 19961101, end: 19961205

REACTIONS (1)
  - STEVENS-JOHNSON SYNDROME [None]
